FAERS Safety Report 17445980 (Version 2)
Quarter: 2020Q1

REPORT INFORMATION
  Report Type: Report from Study
  Country: CO (occurrence: CO)
  Receive Date: 20200221
  Receipt Date: 20200227
  Transmission Date: 20200409
  Serious: No
  Sender: FDA-Public Use
  Company Number: CO-AMGEN-COLSL2019046855

PATIENT
  Age: 75 Year
  Sex: Male

DRUGS (3)
  1. ARTIFICIAL TEARS [GLYCEROL;HYPROMELLOSE;MACROGOL] [Concomitant]
     Dosage: UNK, (APPLY ONE DROP IN EACH EYE 3 TIMES A DAY OR MORE FREQUENTLY ACCORDING SYMPTOMS)
  2. VECTIBIX [Suspect]
     Active Substance: PANITUMUMAB
     Indication: COLORECTAL CANCER METASTATIC
     Dosage: 390 MILLIGRAM, Q2WK
     Route: 042
     Dates: start: 20190206, end: 201906
  3. VECTIBIX [Suspect]
     Active Substance: PANITUMUMAB
     Dosage: 310 MILLIGRAM, Q2WK
     Route: 042
     Dates: start: 20191028

REACTIONS (13)
  - Tongue discolouration [Not Recovered/Not Resolved]
  - Urticaria [Not Recovered/Not Resolved]
  - Stomatitis [Not Recovered/Not Resolved]
  - Skin fissures [Not Recovered/Not Resolved]
  - Eyelid disorder [Not Recovered/Not Resolved]
  - Dry skin [Not Recovered/Not Resolved]
  - Rash [Not Recovered/Not Resolved]
  - Eye pruritus [Recovering/Resolving]
  - Pain in extremity [Recovered/Resolved]
  - Papule [Not Recovered/Not Resolved]
  - Musculoskeletal discomfort [Not Recovered/Not Resolved]
  - Sleep disorder due to a general medical condition [Not Recovered/Not Resolved]
  - Pruritus [Not Recovered/Not Resolved]

NARRATIVE: CASE EVENT DATE: 20190306
